FAERS Safety Report 7633350-6 (Version None)
Quarter: 2011Q3

REPORT INFORMATION
  Report Type: 
  Country: None (occurrence: None)
  Receive Date: 20110725
  Receipt Date: 20100831
  Transmission Date: 20111222
  Serious: No
  Sender: FDA-Public Use
  Company Number: US-BRISTOL-MYERS SQUIBB COMPANY-15268717

PATIENT
  Age: 22 Year
  Sex: Female

DRUGS (1)
  1. SPRYCEL [Suspect]
     Indication: CHRONIC MYELOID LEUKAEMIA
     Dosage: TAKEN FOR LAST 2 YEARS
     Route: 048
     Dates: start: 20080801, end: 20100801

REACTIONS (1)
  - PREGNANCY [None]
